FAERS Safety Report 9234352 (Version 1)
Quarter: 2013Q2

REPORT INFORMATION
  Report Type: Spontaneous
  Country: EC (occurrence: EC)
  Receive Date: 20130416
  Receipt Date: 20130416
  Transmission Date: 20140414
  Serious: Yes (Other)
  Sender: FDA-Public Use
  Company Number: EC-PFIZER INC-2013114846

PATIENT
  Age: 59 Year
  Sex: Male

DRUGS (2)
  1. LIPITOR [Suspect]
     Dosage: 80 MG, 1X/DAY
     Route: 048
     Dates: start: 20121006, end: 20121019
  2. OLMETEC [Concomitant]
     Dosage: UNK
     Route: 048

REACTIONS (2)
  - Hyponatraemic syndrome [Unknown]
  - Hypokalaemic syndrome [Unknown]
